FAERS Safety Report 7658100-9 (Version None)
Quarter: 2011Q3

REPORT INFORMATION
  Report Type: 
  Country: None (occurrence: None)
  Receive Date: 20110805
  Receipt Date: 20110726
  Transmission Date: 20111222
  Serious: Yes (Other)
  Sender: FDA-Public Use
  Company Number: GB-RB-027330-11

PATIENT
  Age: 72 Year
  Sex: Female

DRUGS (5)
  1. RAMIPRIL [Concomitant]
  2. FUROSEMIDE [Concomitant]
  3. SALICYLIC ACID [Suspect]
     Indication: SKIN LESION EXCISION
     Route: 061
  4. DIGOXIN [Concomitant]
  5. WARFARIN [Concomitant]

REACTIONS (1)
  - SOFT TISSUE NECROSIS [None]
